FAERS Safety Report 4981603-2 (Version None)
Quarter: 2006Q2

REPORT INFORMATION
  Report Type: 
  Country: None (occurrence: None)
  Receive Date: 20060421
  Receipt Date: 20060421
  Transmission Date: 20061013
  Serious: Yes (Life-Threatening)
  Sender: FDA-Public Use
  Company Number: None

PATIENT
  Age: 23 Year
  Sex: Male
  Weight: 67.3 kg

DRUGS (1)
  1. RITALIN [Suspect]
     Dosage: 5 MG PO Q DAY
     Route: 048
     Dates: start: 20060228, end: 20060304

REACTIONS (1)
  - GRAND MAL CONVULSION [None]
